FAERS Safety Report 6636213-8 (Version None)
Quarter: 2010Q1

REPORT INFORMATION
  Report Type: 
  Country: None (occurrence: None)
  Receive Date: 20100316
  Receipt Date: 20100304
  Transmission Date: 20100710
  Serious: Yes (Other)
  Sender: FDA-Public Use
  Company Number: US-PFIZER INC-2010029215

PATIENT
  Sex: Male
  Weight: 33.107 kg

DRUGS (1)
  1. GENOTROPIN [Suspect]
     Indication: BODY HEIGHT BELOW NORMAL
     Dates: start: 20090101, end: 20100101

REACTIONS (4)
  - DYSPNOEA [None]
  - PALPITATIONS [None]
  - PERIPHERAL COLDNESS [None]
  - TIC [None]
